FAERS Safety Report 21023082 (Version 4)
Quarter: 2022Q3

REPORT INFORMATION
  Report Type: Report from Study
  Country: US (occurrence: US)
  Receive Date: 20220629
  Receipt Date: 20220802
  Transmission Date: 20221027
  Serious: Yes (Hospitalization)
  Sender: FDA-Public Use
  Company Number: US-GILEAD-2022-0579396

PATIENT
  Sex: Female
  Weight: 90.249 kg

DRUGS (7)
  1. AMBRISENTAN [Suspect]
     Active Substance: AMBRISENTAN
     Indication: Pulmonary arterial hypertension
     Dosage: 10 MG, QD
     Route: 065
     Dates: start: 20191011
  2. REMODULIN [Suspect]
     Active Substance: TREPROSTINIL
     Indication: Pulmonary arterial hypertension
     Dosage: 0.087 UG/KG, CONTNUOUS
     Route: 058
     Dates: start: 20110901
  3. REMODULIN [Suspect]
     Active Substance: TREPROSTINIL
     Dosage: 0.048 ML, Q1HR
     Route: 058
  4. REMODULIN [Suspect]
     Active Substance: TREPROSTINIL
     Dosage: 0.038 ML, Q1HR
     Route: 058
  5. REMODULIN [Suspect]
     Active Substance: TREPROSTINIL
     Dosage: 0.044 ML, Q1HR
     Route: 065
  6. TADALAFIL [Suspect]
     Active Substance: TADALAFIL
     Indication: Product used for unknown indication
     Route: 065
  7. ADCIRCA [Concomitant]
     Active Substance: TADALAFIL

REACTIONS (10)
  - Heart rate increased [Unknown]
  - Fluid retention [Unknown]
  - Flushing [Unknown]
  - Gastrooesophageal reflux disease [Unknown]
  - Hot flush [Unknown]
  - Headache [Unknown]
  - Application site pain [Unknown]
  - Application site swelling [Unknown]
  - Application site inflammation [Recovered/Resolved]
  - Scar [Not Recovered/Not Resolved]
